FAERS Safety Report 8492426-4 (Version None)
Quarter: 2012Q3

REPORT INFORMATION
  Report Type: 
  Country: None (occurrence: None)
  Receive Date: 20120706
  Receipt Date: 20120702
  Transmission Date: 20120928
  Serious: Yes (Hospitalization)
  Sender: FDA-Public Use
  Company Number: JP-PFIZER INC-2012033580

PATIENT
  Age: 62 Year
  Sex: Male
  Weight: 53 kg

DRUGS (4)
  1. ACETAMINOPHEN [Suspect]
     Dosage: UNK
     Route: 048
     Dates: start: 20110927, end: 20120206
  2. SUTENT [Suspect]
     Indication: RENAL CELL CARCINOMA
     Dosage: 50 MG, 1X/DAY
     Route: 048
     Dates: start: 20120201, end: 20120206
  3. LOXONIN [Suspect]
     Dosage: UNK
     Route: 048
     Dates: start: 20111003
  4. VOLTAREN [Suspect]
     Dosage: UNK
     Route: 054
     Dates: start: 20120113, end: 20120205

REACTIONS (1)
  - COLITIS [None]
